FAERS Safety Report 5705439-X (Version None)
Quarter: 2008Q2

REPORT INFORMATION
  Report Type: 
  Country: None (occurrence: None)
  Receive Date: 20080410
  Receipt Date: 20080331
  Transmission Date: 20081010
  Serious: No
  Sender: FDA-Public Use
  Company Number: DX3070067C

PATIENT
  Age: 2 Year
  Sex: Male

DRUGS (11)
  1. PRECEDEX [Suspect]
     Indication: SEDATION
     Dosage: 0.36-0.72MCG/KG/HR IV
     Route: 042
     Dates: start: 20070417, end: 20070420
  2. DIAZEPAM [Concomitant]
  3. ATROPINE SULFATE [Concomitant]
  4. MIOBLOCK (PANCURONIUM BROMIDE) [Concomitant]
  5. FENTANYL CITRATE [Concomitant]
  6. DORMICUM (MIDAZOLAM) [Concomitant]
  7. SEVOFLURANE [Concomitant]
  8. DOBUTREX [Concomitant]
  9. MILRINONE (MILRINONE) [Concomitant]
  10. NITROGLYCERIN [Concomitant]
  11. APROTININ SOLUTION (APROTININ SOLUTION) [Concomitant]

REACTIONS (3)
  - CARDIAC FAILURE [None]
  - CENTRAL VENOUS PRESSURE INCREASED [None]
  - TACHYCARDIA [None]
